FAERS Safety Report 6357515-9 (Version None)
Quarter: 2009Q3

REPORT INFORMATION
  Report Type: 
  Country: None (occurrence: None)
  Receive Date: 20090916
  Receipt Date: 20070607
  Transmission Date: 20100115
  Serious: Yes (Other)
  Sender: FDA-Public Use
  Company Number: US-ASTRAZENECA-2006UW27868

PATIENT
  Age: 466 Month
  Sex: Female
  Weight: 107 kg

DRUGS (5)
  1. SEROQUEL [Suspect]
     Indication: BIPOLAR DISORDER
     Route: 048
     Dates: start: 20040820
  2. WELLBUTRIN [Concomitant]
     Route: 048
     Dates: start: 20040820
  3. FLUOXETINE [Concomitant]
     Route: 048
     Dates: start: 20040820
  4. EFFEXOR [Concomitant]
     Route: 048
     Dates: start: 20051202
  5. LIPITOR [Concomitant]
     Dates: start: 20051223

REACTIONS (6)
  - DIABETES MELLITUS [None]
  - DIABETIC NEUROPATHY [None]
  - HYPERGLYCAEMIA [None]
  - HYPOGLYCAEMIA [None]
  - NEUROPATHY PERIPHERAL [None]
  - TYPE 2 DIABETES MELLITUS [None]
